FAERS Safety Report 8555665-X (Version None)
Quarter: 2012Q3

REPORT INFORMATION
  Report Type: 
  Country: None (occurrence: None)
  Receive Date: 20120801
  Receipt Date: 20120718
  Transmission Date: 20120928
  Serious: Yes (Other)
  Sender: FDA-Public Use
  Company Number: GB-MYLANLABS-2012S1014786

PATIENT
  Age: 75 Year
  Sex: Female
  Weight: 69.85 kg

DRUGS (2)
  1. DILTIAZEM [Suspect]
     Indication: ANGINA PECTORIS
     Route: 048
     Dates: start: 20020101, end: 20120416
  2. ATENOLOL [Concomitant]
     Indication: PRODUCT USED FOR UNKNOWN INDICATION

REACTIONS (2)
  - BREAST ENLARGEMENT [None]
  - WEIGHT INCREASED [None]
